FAERS Safety Report 5897216-4 (Version None)
Quarter: 2008Q3

REPORT INFORMATION
  Report Type: 
  Country: None (occurrence: None)
  Receive Date: 20080923
  Receipt Date: 20080909
  Transmission Date: 20090109
  Serious: Yes (Other)
  Sender: FDA-Public Use
  Company Number: B0537347A

PATIENT
  Age: 37 Year
  Sex: Female

DRUGS (7)
  1. LAMIVUDINE [Suspect]
     Indication: HIV INFECTION
  2. ABACAVIR SULFATE [Suspect]
     Indication: HIV INFECTION
  3. EFAVIRENZ [Suspect]
     Indication: HIV INFECTION
  4. RIFAMPICIN [Concomitant]
  5. ISONIAZID [Concomitant]
  6. PYRAZINAMIDE [Concomitant]
  7. ETHAMBUTOL HYDROCHLORIDE [Concomitant]

REACTIONS (1)
  - IMMUNE RECONSTITUTION SYNDROME [None]
